FAERS Safety Report 20470509 (Version 1)
Quarter: 2022Q1

REPORT INFORMATION
  Report Type: Report from Study
  Country: IN (occurrence: IN)
  Receive Date: 20220214
  Receipt Date: 20220214
  Transmission Date: 20220424
  Serious: Yes (Other)
  Sender: FDA-Public Use
  Company Number: IN-GLAXOSMITHKLINE-INCH2022GSK006178

PATIENT

DRUGS (3)
  1. DICLOFENAC [Suspect]
     Active Substance: DICLOFENAC
     Indication: Pain
     Dosage: 100 MG
     Route: 054
  2. BETADINE (IODOPOVIDONE) [Concomitant]
     Indication: Product used for unknown indication
     Dosage: UNK
  3. SONAMUKHI [Concomitant]
     Indication: Product used for unknown indication
     Dosage: 6 G

REACTIONS (1)
  - Haemorrhage [Unknown]
